FAERS Safety Report 6541567-7 (Version None)
Quarter: 2010Q1

REPORT INFORMATION
  Report Type: 
  Country: None (occurrence: None)
  Receive Date: 20100119
  Receipt Date: 20100111
  Transmission Date: 20100710
  Serious: Yes (Other)
  Sender: FDA-Public Use
  Company Number: US-ROCHE-678668

PATIENT
  Sex: Female

DRUGS (5)
  1. XELODA [Suspect]
     Indication: DRUG USE FOR UNKNOWN INDICATION
     Route: 065
     Dates: end: 20091222
  2. TYKERB [Suspect]
     Indication: DRUG USE FOR UNKNOWN INDICATION
     Route: 048
     Dates: end: 20091228
  3. DOCETAXEL [Concomitant]
     Dates: start: 20091228
  4. CARBOPLATIN [Concomitant]
     Dates: start: 20091228
  5. TRASTUZUMAB [Concomitant]
     Dates: start: 20091228

REACTIONS (6)
  - CONSTIPATION [None]
  - DIARRHOEA [None]
  - DRY SKIN [None]
  - FATIGUE [None]
  - HEPATIC NEOPLASM [None]
  - UPPER RESPIRATORY TRACT INFECTION [None]
